FAERS Safety Report 13849185 (Version 1)
Quarter: 2017Q3

REPORT INFORMATION
  Report Type: Spontaneous
  Country: US (occurrence: US)
  Receive Date: 20170809
  Receipt Date: 20170809
  Transmission Date: 20171127
  Serious: Yes (Hospitalization)
  Sender: FDA-Public Use
  Company Number: None

PATIENT
  Age: 72 Year
  Sex: Male
  Weight: 83.99 kg

DRUGS (6)
  1. ENBREL [Suspect]
     Active Substance: ETANERCEPT
     Indication: RHEUMATOID ARTHRITIS
     Dosage: ?          QUANTITY:?1. MARION WEEN;?
     Dates: start: 20170601, end: 20170601
  2. HYDROCHLOROTHIAZIDE. [Concomitant]
     Active Substance: HYDROCHLOROTHIAZIDE
  3. BABY ASPIRIN [Concomitant]
     Active Substance: ASPIRIN
  4. VINEGAR ^APPLE CIDER^ [Concomitant]
  5. ATENOLOL. [Concomitant]
     Active Substance: ATENOLOL
  6. OMEPHAZOLE [Concomitant]

REACTIONS (6)
  - Influenza like illness [None]
  - Malaise [None]
  - Chills [None]
  - White blood cell count decreased [None]
  - Hyperhidrosis [None]
  - Cough [None]

NARRATIVE: CASE EVENT DATE: 20170608
